FAERS Safety Report 6442357-6 (Version None)
Quarter: 2009Q4

REPORT INFORMATION
  Report Type: 
  Country: None (occurrence: None)
  Receive Date: 20091112
  Receipt Date: 20091104
  Transmission Date: 20100525
  Serious: Yes (Other)
  Sender: FDA-Public Use
  Company Number: 2009SP005399

PATIENT
  Age: 44 Year
  Sex: Female

DRUGS (2)
  1. PEG-INTRON [Suspect]
     Indication: HEPATITIS C
     Dosage: 1 DF;QW;SC
     Route: 058
     Dates: start: 20071213, end: 20081107
  2. COPEGUE [Concomitant]

REACTIONS (7)
  - ASTHENIA [None]
  - CONDITION AGGRAVATED [None]
  - CRYOGLOBULINAEMIA [None]
  - DYSPNOEA [None]
  - HYPERHIDROSIS [None]
  - INFECTION [None]
  - INFECTION SUSCEPTIBILITY INCREASED [None]
